APPROVED DRUG PRODUCT: HEXABRIX
Active Ingredient: IOXAGLATE MEGLUMINE; IOXAGLATE SODIUM
Strength: 39.3%;19.6%
Dosage Form/Route: INJECTABLE;INJECTION
Application: N018905 | Product #002
Applicant: GUERBET LLC
Approved: Jul 26, 1985 | RLD: No | RS: No | Type: DISCN